FAERS Safety Report 9588802 (Version 1)
Quarter: 2013Q4

REPORT INFORMATION
  Report Type: Spontaneous
  Country: US (occurrence: US)
  Receive Date: 20131003
  Receipt Date: 20131003
  Transmission Date: 20140711
  Serious: No
  Sender: FDA-Public Use
  Company Number: US-AMGEN-USASP2012065789

PATIENT
  Age: 60 Year
  Sex: Male
  Weight: 59.86 kg

DRUGS (8)
  1. ENBREL [Suspect]
     Indication: RHEUMATOID ARTHRITIS
     Dosage: 50 MG, QWK
     Route: 058
  2. SIMVASTATIN [Concomitant]
     Dosage: 10 MG, UNK
     Route: 048
  3. BABY ASPIRIN [Concomitant]
     Dosage: 81 MG, UNK
     Route: 048
  4. OMEGA 3                            /01334101/ [Concomitant]
     Dosage: 1000 MG, UNK
     Route: 048
  5. TRAMADOL HCL [Concomitant]
     Dosage: 50 MG, UNK
     Route: 048
  6. METHOTREXATE [Concomitant]
     Dosage: 2.5 MG, UNK
     Route: 048
  7. FOLIC ACID [Concomitant]
     Dosage: UNK
     Route: 048
  8. PREDNISONE [Concomitant]
     Dosage: 5 MG, UNK
     Route: 048

REACTIONS (1)
  - Nasopharyngitis [Recovered/Resolved]
